FAERS Safety Report 9117611 (Version 1)
Quarter: 2013Q1

REPORT INFORMATION
  Report Type: Spontaneous
  Country: US (occurrence: US)
  Receive Date: 20130128
  Receipt Date: 20130128
  Transmission Date: 20140127
  Serious: No
  Sender: FDA-Public Use
  Company Number: US-009507513-1301USA012353

PATIENT
  Age: 28 Year
  Sex: Female
  Weight: 117.91 kg

DRUGS (1)
  1. NUVARING [Suspect]
     Indication: CONTRACEPTION
     Dosage: 1 RING FOR 3 WEEKS,USING SINCE AGE OF 17
     Route: 067
     Dates: start: 2002

REACTIONS (2)
  - Unintended pregnancy [Unknown]
  - Incorrect product storage [Unknown]
